APPROVED DRUG PRODUCT: HYDROCODONE BITARTRATE AND ACETAMINOPHEN
Active Ingredient: ACETAMINOPHEN; HYDROCODONE BITARTRATE
Strength: 325MG;2.5MG
Dosage Form/Route: TABLET;ORAL
Application: A040846 | Product #001
Applicant: MIKART LLC
Approved: Jun 9, 2010 | RLD: No | RS: No | Type: DISCN